FAERS Safety Report 7791552-2 (Version None)
Quarter: 2011Q4

REPORT INFORMATION
  Report Type: 
  Country: None (occurrence: None)
  Receive Date: 20111003
  Receipt Date: 20110920
  Transmission Date: 20120403
  Serious: Yes (Other)
  Sender: FDA-Public Use
  Company Number: US-BAYER-201036818NA

PATIENT
  Age: 30 Year
  Sex: Female
  Weight: 77 kg

DRUGS (6)
  1. YAZ [Suspect]
     Indication: ORAL CONTRACEPTION
     Dosage: UNK
     Route: 048
     Dates: start: 20060701, end: 20080501
  2. YASMIN [Suspect]
     Dosage: UNK
     Dates: start: 20040201, end: 20060501
  3. YASMIN [Suspect]
     Indication: CYST
     Dosage: UNK
     Route: 048
     Dates: start: 19990101, end: 20031001
  4. YASMIN [Suspect]
     Route: 048
     Dates: start: 20030101, end: 20080501
  5. DICYCLOMINE [Concomitant]
     Dosage: UNK
     Dates: start: 20070716
  6. YAZ [Suspect]
     Indication: CYST
     Dosage: UNK
     Route: 048
     Dates: start: 20060501, end: 20080501

REACTIONS (7)
  - CHOLECYSTITIS [None]
  - GALLBLADDER DISORDER [None]
  - INJURY [None]
  - DEPRESSION [None]
  - EMOTIONAL DISTRESS [None]
  - NERVOUSNESS [None]
  - FEAR OF DEATH [None]
